FAERS Safety Report 21337894 (Version 4)
Quarter: 2022Q4

REPORT INFORMATION
  Report Type: Report from Study
  Country: FR (occurrence: None)
  Receive Date: 20220915
  Receipt Date: 20221102
  Transmission Date: 20230113
  Serious: Yes (Death)
  Sender: FDA-Public Use
  Company Number: 2022A311892

PATIENT
  Age: 73 Year
  Sex: Female
  Weight: 65 kg

DRUGS (2)
  1. EVUSHELD [Suspect]
     Active Substance: CILGAVIMAB\TIXAGEVIMAB
     Indication: COVID-19 prophylaxis
     Dosage: 300 MG (150 MG TIXAGEVIMAB/150 MG CILGAVIMAB) ONCE/SINGLE ADMINISTRATION
     Route: 030
     Dates: start: 20220117
  2. EVUSHELD [Suspect]
     Active Substance: CILGAVIMAB\TIXAGEVIMAB
     Indication: COVID-19 prophylaxis
     Dosage: 300 MG (150 MG TIXAGEVIMAB/150 MG CILGAVIMAB) ONCE/SINGLE ADMINISTRATION
     Route: 030
     Dates: start: 20220513

REACTIONS (2)
  - Hepatic failure [Fatal]
  - Lymphoma [Fatal]

NARRATIVE: CASE EVENT DATE: 20220101
